FAERS Safety Report 9515886 (Version 4)
Quarter: 2013Q4

REPORT INFORMATION
  Report Type: Report from Study
  Country: ES (occurrence: ES)
  Receive Date: 20130911
  Receipt Date: 20131202
  Transmission Date: 20140711
  Serious: Yes (Hospitalization)
  Sender: FDA-Public Use
  Company Number: ES-PFIZER INC-2013254532

PATIENT
  Age: 81 Year
  Sex: Female

DRUGS (13)
  1. OLMETEC [Suspect]
     Indication: HYPERTENSION
     Dosage: 10 MG, DAILY
     Route: 048
     Dates: start: 20130101, end: 20130426
  2. ALDACTONE [Interacting]
     Dosage: 100 MG, DAILY
     Route: 048
     Dates: start: 20090331
  3. SEGURIL [Interacting]
     Dosage: 40 MG, 4X/DAY
     Route: 048
     Dates: start: 20041022
  4. ACTONEL [Concomitant]
     Dosage: 35 MG, WEEKLY
     Route: 048
  5. DIGOXIN [Concomitant]
     Dosage: 25 UG, 1X/DAY
     Route: 048
  6. OMEPRAZOL [Concomitant]
     Dosage: 20 MG, 1X/DAY
     Route: 048
     Dates: end: 20130710
  7. CARVEDILOL [Concomitant]
     Dosage: UNK
     Route: 048
  8. DOLOCATIL [Concomitant]
     Dosage: 1 G, 3X/DAY
     Route: 048
     Dates: start: 20060831
  9. DUPHALAC [Concomitant]
     Dosage: 10 G, 1X/DAY
     Route: 048
  10. MYCOSTATIN [Concomitant]
     Dosage: UNK
     Route: 048
     Dates: start: 20090425
  11. PLUSVENT [Concomitant]
     Dosage: 50 UG, 2X/DAY
     Route: 055
  12. SINTROM [Concomitant]
     Dosage: 4 MG, 1X/DAY
     Route: 048
  13. TERBASMIN [Concomitant]
     Dosage: 1000 UG, 3X/DAY
     Route: 055
     Dates: start: 20130311

REACTIONS (2)
  - Drug interaction [Recovered/Resolved]
  - Hyponatraemia [Recovered/Resolved]
